FAERS Safety Report 13980495 (Version 1)
Quarter: 2017Q3

REPORT INFORMATION
  Report Type: Spontaneous
  Country: US (occurrence: US)
  Receive Date: 20170918
  Receipt Date: 20170918
  Transmission Date: 20171128
  Serious: Yes (Other)
  Sender: FDA-Public Use
  Company Number: US-AUROBINDO-AUR-APL-2017-40300

PATIENT
  Age: 71 Year
  Sex: Male

DRUGS (1)
  1. PREDNISONE. [Suspect]
     Active Substance: PREDNISONE
     Indication: THYMOMA
     Route: 065

REACTIONS (3)
  - Infectious pleural effusion [Recovered/Resolved]
  - Pleurisy [Recovered/Resolved]
  - Salmonellosis [Recovered/Resolved]
